FAERS Safety Report 9754010 (Version 1)
Quarter: 2013Q4

REPORT INFORMATION
  Report Type: Spontaneous
  Country: US (occurrence: US)
  Receive Date: 20131213
  Receipt Date: 20131213
  Transmission Date: 20140711
  Serious: No
  Sender: FDA-Public Use
  Company Number: US-GLAXOSMITHKLINE-A1007049A

PATIENT
  Sex: Male

DRUGS (2)
  1. NICORETTE [Suspect]
  2. NICORETTE MINIS MINT 2 MG [Suspect]

REACTIONS (3)
  - Nicotine dependence [Not Recovered/Not Resolved]
  - Drug ineffective [Unknown]
  - Drug administration error [Unknown]
